FAERS Safety Report 14897587 (Version 2)
Quarter: 2018Q2

REPORT INFORMATION
  Report Type: Spontaneous
  Country: US (occurrence: US)
  Receive Date: 20180515
  Receipt Date: 20180515
  Transmission Date: 20180711
  Serious: Yes (Death, Other)
  Sender: FDA-Public Use
  Company Number: US-UNITED THERAPEUTICS-UNT-2018-006682

PATIENT
  Sex: Male
  Weight: 2.81 kg

DRUGS (1)
  1. REMODULIN [Suspect]
     Active Substance: TREPROSTINIL
     Indication: PERSISTENT FOETAL CIRCULATION
     Dosage: UNK
     Route: 058

REACTIONS (4)
  - Pneumonia [Fatal]
  - Interstitial lung disease [Unknown]
  - Alveolar capillary dysplasia [Fatal]
  - Atelectasis neonatal [Unknown]
